FAERS Safety Report 17241124 (Version 3)
Quarter: 2021Q1

REPORT INFORMATION
  Report Type: Spontaneous
  Country: FR (occurrence: FR)
  Receive Date: 20200107
  Receipt Date: 20210120
  Transmission Date: 20210419
  Serious: Yes (Other)
  Sender: FDA-Public Use
  Company Number: FR-ACCORD-168952

PATIENT
  Age: 20 Year
  Sex: Male
  Weight: 75 kg

DRUGS (10)
  1. COSENTYX [Suspect]
     Active Substance: SECUKINUMAB
     Indication: PUSTULAR PSORIASIS
     Dosage: 300 MG, QW (IN THE 12 HOURS THAT FOLLOWED THIRD INHECTION)
     Route: 058
  2. COSENTYX [Suspect]
     Active Substance: SECUKINUMAB
     Indication: PUSTULAR PSORIASIS
     Dosage: 2 DF, QW (150 )
     Route: 058
     Dates: start: 20170124
  3. METHOTREXATE. [Suspect]
     Active Substance: METHOTREXATE
     Indication: PUSTULAR PSORIASIS
     Dosage: 15 MG, QW (FOR ONE MONTH)
     Route: 065
  4. COSENTYX [Suspect]
     Active Substance: SECUKINUMAB
     Indication: PUSTULAR PSORIASIS
     Dosage: 2 DF, QD (150)
     Route: 058
     Dates: start: 20170214, end: 20170214
  5. DESLORATADINE. [Concomitant]
     Active Substance: DESLORATADINE
     Indication: PUSTULAR PSORIASIS
     Dosage: 20 MG, QD
     Route: 065
  6. METHOTREXATE. [Suspect]
     Active Substance: METHOTREXATE
     Indication: PUSTULAR PSORIASIS
     Dosage: 20 MG, QW (FOR 3 MONTHS)
     Route: 065
  7. ACITRETIN. [Suspect]
     Active Substance: ACITRETIN
     Indication: PUSTULAR PSORIASIS
     Dosage: 25 MG, QD (FOR SEVEN MONTHS)
     Route: 065
  8. DERMOVAL [Concomitant]
     Indication: PSORIASIS
     Route: 065
  9. COSENTYX [Suspect]
     Active Substance: SECUKINUMAB
     Indication: PUSTULAR PSORIASIS
     Dosage: 2 DF, QD (150)
     Route: 058
     Dates: start: 20170131, end: 20170131
  10. COSENTYX [Suspect]
     Active Substance: SECUKINUMAB
     Indication: PUSTULAR PSORIASIS
     Dosage: 2 DF, QD (150)
     Route: 058
     Dates: start: 20170117, end: 20170117

REACTIONS (13)
  - Muscle spasms [Unknown]
  - Angioedema [Recovered/Resolved]
  - Dysphagia [Unknown]
  - Rash erythematous [Unknown]
  - Pruritus [Unknown]
  - Inappropriate schedule of product administration [Unknown]
  - Anaphylactic reaction [Unknown]
  - Lip oedema [Unknown]
  - Urticaria [Recovered/Resolved]
  - Type I hypersensitivity [Unknown]
  - Anaphylactoid reaction [Unknown]
  - Skin oedema [Unknown]
  - Eyelid oedema [Unknown]
